FAERS Safety Report 23442910 (Version 2)
Quarter: 2024Q1

REPORT INFORMATION
  Report Type: Spontaneous
  Country: IN (occurrence: IN)
  Receive Date: 20240125
  Receipt Date: 20240201
  Transmission Date: 20240410
  Serious: Yes (Other)
  Sender: FDA-Public Use
  Company Number: IN-SA-2024SA024949

PATIENT
  Age: 30 Year
  Sex: Female

DRUGS (9)
  1. GLIMEPIRIDE\METFORMIN\VOGLIBOSE [Suspect]
     Active Substance: GLIMEPIRIDE\METFORMIN\VOGLIBOSE
     Indication: Type 2 diabetes mellitus
     Dosage: GLIMEPIRIDE 2 MG + VOGLIBOSE 0.2MG + METFORMIN 500 MG SR DAILY.
  2. GLICLAZIDE [Concomitant]
     Active Substance: GLICLAZIDE
     Dosage: 3 MG, QD
     Route: 048
  3. PROCHLORPERAZINE [Concomitant]
     Active Substance: PROCHLORPERAZINE
     Dosage: 2.5 MG SOS (TABLET COMBINATION OF DRUGS FOR THE LAST 6-7 YEARS)
  4. CAFFEINE [Concomitant]
     Active Substance: CAFFEINE
     Dosage: 100 MG  (TABLET COMBINATION OF DRUGS FOR THE LAST 6-7 YEARS)
  5. ERGOTAMINE [Concomitant]
     Active Substance: CAFFEINE\ERGOTAMINE\ERGOTAMINE TARTRATE
     Dosage: 1 MG  (TABLET COMBINATION OF DRUGS FOR THE LAST 6-7 YEARS)
  6. ACETAMINOPHEN [Concomitant]
     Active Substance: ACETAMINOPHEN
     Dosage: 250 MG  (TABLET COMBINATION OF DRUGS FOR THE LAST 6-7 YEARS)
  7. CLOMIPHENE CITRATE [Concomitant]
     Active Substance: CLOMIPHENE CITRATE
     Dosage: 100 MG
     Route: 048
  8. VITAMIN D NOS [Concomitant]
     Active Substance: VITAMIN D NOS
     Indication: Polycystic ovarian syndrome
     Dosage: 10000 IU, BIW
  9. CALCIUM [Concomitant]
     Active Substance: CALCIUM
     Indication: Polycystic ovarian syndrome
     Dosage: 1250 MG, BID

REACTIONS (7)
  - Erythema multiforme [Recovered/Resolved]
  - Pruritus [Recovered/Resolved]
  - Erythema [Recovered/Resolved]
  - Hypersensitivity [Recovered/Resolved]
  - Ageusia [Recovered/Resolved]
  - Rash maculo-papular [Recovered/Resolved]
  - Rash [Recovered/Resolved]
